FAERS Safety Report 8233810-3 (Version None)
Quarter: 2012Q1

REPORT INFORMATION
  Report Type: 
  Country: None (occurrence: None)
  Receive Date: 20120326
  Receipt Date: 20120315
  Transmission Date: 20120608
  Serious: Yes (Other)
  Sender: FDA-Public Use
  Company Number: JP-ASTELLAS-2011US008801

PATIENT
  Age: 68 Year
  Sex: Male

DRUGS (2)
  1. FLOMOX [Suspect]
     Indication: PRODUCT USED FOR UNKNOWN INDICATION
     Dosage: UNK
     Route: 048
     Dates: start: 20111109
  2. TARCEVA [Suspect]
     Indication: LUNG ADENOCARCINOMA
     Dosage: 150 MG, UID/QD
     Route: 048
     Dates: start: 20111101, end: 20111219

REACTIONS (2)
  - DRUG ERUPTION [None]
  - UPPER RESPIRATORY TRACT INFECTION [None]
